FAERS Safety Report 13064197 (Version 5)
Quarter: 2018Q4

REPORT INFORMATION
  Report Type: Spontaneous
  Country: US (occurrence: US)
  Receive Date: 20161227
  Receipt Date: 20181005
  Transmission Date: 20190204
  Serious: Yes (Congenital Anomaly, Other)
  Sender: FDA-Public Use
  Company Number: PHEH2016US033665

PATIENT
  Sex: Male

DRUGS (2)
  1. ONDANSETRON HYDROCHLORIDE. [Suspect]
     Active Substance: ONDANSETRON HYDROCHLORIDE
     Indication: FOETAL EXPOSURE DURING PREGNANCY
     Dosage: MOTHER DOSE: 4 MG, Q6H
     Route: 064
  2. ZOFRAN [Suspect]
     Active Substance: ONDANSETRON HYDROCHLORIDE
     Indication: FOETAL EXPOSURE DURING PREGNANCY
     Dosage: MOTHER DOSE: 2 MG/ML UNK
     Route: 064

REACTIONS (20)
  - Conjunctivitis [Unknown]
  - Rhinitis [Unknown]
  - Head injury [Unknown]
  - Congenital anomaly [Unknown]
  - Rash [Unknown]
  - Gastroenteritis [Unknown]
  - Urethritis [Unknown]
  - Skin laceration [Unknown]
  - Anomalous pulmonary venous connection [Unknown]
  - Ventricular septal defect [Unknown]
  - Heart disease congenital [Unknown]
  - Phimosis [Unknown]
  - Foetal exposure during pregnancy [Unknown]
  - Upper respiratory tract infection [Unknown]
  - Nasopharyngitis [Unknown]
  - Viral infection [Unknown]
  - Atrial septal defect [Unknown]
  - Injury [Unknown]
  - Pyrexia [Unknown]
  - Dermatitis [Unknown]
